FAERS Safety Report 4924761-8 (Version None)
Quarter: 2006Q1

REPORT INFORMATION
  Report Type: 
  Country: None (occurrence: None)
  Receive Date: 20060222
  Receipt Date: 20060215
  Transmission Date: 20060701
  Serious: Yes (Hospitalization)
  Sender: FDA-Public Use
  Company Number: 13309

PATIENT
  Age: 55 Year
  Sex: Male

DRUGS (7)
  1. METHOTREXATE [Suspect]
     Indication: LEUKAEMIA
     Dosage: 1830 MG QD, IV
     Route: 042
     Dates: start: 20051011, end: 20051012
  2. METHOTREXATE [Suspect]
     Indication: MANTLE CELL LYMPHOMA
     Dosage: 1830 MG QD, IV
     Route: 042
     Dates: start: 20051011, end: 20051012
  3. CIPRO [Concomitant]
  4. DIFLUCAN [Concomitant]
  5. ACYCLOVIR SODIUM [Concomitant]
  6. ATIVAN [Concomitant]
  7. DECADRON SRC [Concomitant]

REACTIONS (5)
  - HAEMODIALYSIS [None]
  - HYDRONEPHROSIS [None]
  - MUCOSAL INFLAMMATION [None]
  - RENAL FAILURE ACUTE [None]
  - TUMOUR LYSIS SYNDROME [None]
